FAERS Safety Report 13425367 (Version 1)
Quarter: 2017Q2

REPORT INFORMATION
  Report Type: Spontaneous
  Country: US (occurrence: US)
  Receive Date: 20170411
  Receipt Date: 20170411
  Transmission Date: 20170830
  Serious: No
  Sender: FDA-Public Use
  Company Number: US-TEVA-757561ACC

PATIENT
  Sex: Female

DRUGS (2)
  1. METHYLPRED [Concomitant]
     Active Substance: METHYLPREDNISOLONE
  2. COPAXONE [Suspect]
     Active Substance: GLATIRAMER ACETATE
     Indication: MULTIPLE SCLEROSIS
     Route: 058
     Dates: start: 20110630

REACTIONS (1)
  - Hypoaesthesia [Unknown]
